FAERS Safety Report 8112893-5 (Version None)
Quarter: 2012Q1

REPORT INFORMATION
  Report Type: 
  Country: None (occurrence: None)
  Receive Date: 20120131
  Receipt Date: 20120118
  Transmission Date: 20120608
  Serious: Yes (Other)
  Sender: FDA-Public Use
  Company Number: MC2012000030

PATIENT
  Age: 62 Year
  Sex: Female

DRUGS (5)
  1. ANGIOMAX [Suspect]
     Indication: PERCUTANEOUS CORONARY INTERVENTION
     Dosage: 11 ML, BOLUS, INTRAVENOUS; 25.8 ML, HR, INTRAVENOUS
     Route: 042
     Dates: start: 20120118, end: 20120118
  2. ANGIOMAX [Suspect]
     Indication: PERCUTANEOUS CORONARY INTERVENTION
     Dosage: 11 ML, BOLUS, INTRAVENOUS; 25.8 ML, HR, INTRAVENOUS
     Route: 042
     Dates: start: 20120118, end: 20120118
  3. CLOPIDOGREL [Concomitant]
  4. ASPIRIN [Concomitant]
  5. HEPARIN [Concomitant]

REACTIONS (2)
  - CHEST PAIN [None]
  - CORONARY ARTERY RESTENOSIS [None]
